FAERS Safety Report 18895082 (Version 1)
Quarter: 2021Q1

REPORT INFORMATION
  Report Type: Spontaneous
  Country: US (occurrence: US)
  Receive Date: 20210215
  Receipt Date: 20210215
  Transmission Date: 20210420
  Serious: Yes (Hospitalization)
  Sender: FDA-Public Use
  Company Number: US-NOVOPROD-785806

PATIENT
  Sex: Female

DRUGS (2)
  1. OZEMPIC [Suspect]
     Active Substance: SEMAGLUTIDE
     Dosage: 0.5 MG
     Route: 065
  2. OZEMPIC [Suspect]
     Active Substance: SEMAGLUTIDE
     Indication: TYPE 2 DIABETES MELLITUS
     Dosage: 0.25MG
     Route: 065
     Dates: start: 2020

REACTIONS (8)
  - Near death experience [Unknown]
  - Rash [Unknown]
  - Pain [Unknown]
  - Extra dose administered [Unknown]
  - Blood pressure increased [Unknown]
  - Dizziness [Unknown]
  - Eye disorder [Unknown]
  - Stress [Unknown]

NARRATIVE: CASE EVENT DATE: 202008
